FAERS Safety Report 17136636 (Version 3)
Quarter: 2021Q3

REPORT INFORMATION
  Report Type: Spontaneous
  Country: US (occurrence: US)
  Receive Date: 20191210
  Receipt Date: 20210701
  Transmission Date: 20211014
  Serious: Yes (Other)
  Sender: FDA-Public Use
  Company Number: US-PFIZER INC-2019530408

PATIENT
  Age: 70 Year
  Sex: Female

DRUGS (2)
  1. LYRICA [Suspect]
     Active Substance: PREGABALIN
     Indication: NEUROPATHY PERIPHERAL
     Dosage: 150 MG, 2X/DAY
     Route: 048
  2. AMITRIPTYLENE [Concomitant]
     Active Substance: AMITRIPTYLINE
     Dosage: 30 MG, 1X/DAY

REACTIONS (7)
  - Neuropathy peripheral [Unknown]
  - Pain in extremity [Unknown]
  - Lymphadenopathy [Unknown]
  - Influenza [Unknown]
  - Arthralgia [Unknown]
  - Neuralgia [Unknown]
  - Off label use [Unknown]
